FAERS Safety Report 8581561-8 (Version None)
Quarter: 2012Q3

REPORT INFORMATION
  Report Type: 
  Country: None (occurrence: None)
  Receive Date: 20120809
  Receipt Date: 20120731
  Transmission Date: 20120928
  Serious: Yes (Hospitalization)
  Sender: FDA-Public Use
  Company Number: CA-SANOFI-AVENTIS-2012SA054951

PATIENT
  Age: 47 Year
  Sex: Male
  Weight: 91.4 kg

DRUGS (19)
  1. INVESTIGATIONAL DRUG [Suspect]
     Indication: COLORECTAL CANCER
     Route: 065
     Dates: start: 20120614, end: 20120614
  2. FLUOROURACIL [Suspect]
     Indication: COLORECTAL CANCER
     Route: 065
     Dates: start: 20120614, end: 20120614
  3. FLUOROURACIL [Suspect]
     Route: 065
     Dates: start: 20120712, end: 20120712
  4. LEUCOVORIN CALCIUM [Suspect]
     Indication: COLORECTAL CANCER
     Route: 065
     Dates: start: 20120614, end: 20120614
  5. LEUCOVORIN CALCIUM [Suspect]
     Route: 065
     Dates: start: 20120712, end: 20120712
  6. PROCHLORPERAZINE [Concomitant]
  7. BACLOFEN [Concomitant]
  8. OXALIPLATIN [Suspect]
     Route: 041
  9. FLUOROURACIL [Suspect]
     Route: 065
  10. LEUCOVORIN CALCIUM [Suspect]
     Route: 065
  11. IMODIUM [Concomitant]
  12. OXYCODONE HCL [Concomitant]
  13. OXALIPLATIN [Suspect]
     Indication: COLORECTAL CANCER
     Route: 041
     Dates: start: 20120614, end: 20120614
  14. INVESTIGATIONAL DRUG [Suspect]
     Route: 065
  15. DALTEPARIN SODIUM [Concomitant]
  16. OXALIPLATIN [Suspect]
     Route: 041
     Dates: start: 20120712, end: 20120712
  17. INVESTIGATIONAL DRUG [Suspect]
     Route: 065
     Dates: start: 20120712, end: 20120712
  18. ZOPICLONE [Concomitant]
  19. ENOXAPARIN [Concomitant]
     Dates: start: 20120715, end: 20120717

REACTIONS (1)
  - PLEURAL EFFUSION [None]
